FAERS Safety Report 12245365 (Version 1)
Quarter: 2016Q2

REPORT INFORMATION
  Report Type: Spontaneous
  Country: PE (occurrence: PE)
  Receive Date: 20160407
  Receipt Date: 20160407
  Transmission Date: 20160815
  Serious: Yes (Other)
  Sender: FDA-Public Use
  Company Number: PE-PFIZER INC-2016193752

PATIENT
  Age: 67 Year
  Sex: Female

DRUGS (1)
  1. XALATAN [Suspect]
     Active Substance: LATANOPROST

REACTIONS (1)
  - Neoplasm malignant [Not Recovered/Not Resolved]
